FAERS Safety Report 14641318 (Version 1)
Quarter: 2018Q1

REPORT INFORMATION
  Report Type: Spontaneous
  Country: US (occurrence: US)
  Receive Date: 20180315
  Receipt Date: 20180315
  Transmission Date: 20180509
  Serious: No
  Sender: FDA-Public Use
  Company Number: US-ASTRAZENECA-2018SE21524

PATIENT
  Age: 22925 Day
  Sex: Female

DRUGS (1)
  1. PULMICORT RESPULES [Suspect]
     Active Substance: BUDESONIDE
     Dosage: DOSE 1 MG/2 ML, FREQUENCY TWICE DAILY AS A SINUS RINSE
     Route: 050
     Dates: start: 2017

REACTIONS (5)
  - Influenza [Unknown]
  - Off label use [Not Recovered/Not Resolved]
  - Sinusitis [Unknown]
  - Candida infection [Unknown]
  - Product use issue [Not Recovered/Not Resolved]

NARRATIVE: CASE EVENT DATE: 20180214
